FAERS Safety Report 25101466 (Version 1)
Quarter: 2025Q1

REPORT INFORMATION
  Report Type: Report from Study
  Country: MY (occurrence: MY)
  Receive Date: 20250320
  Receipt Date: 20250320
  Transmission Date: 20250409
  Serious: Yes (Other)
  Sender: TAKEDA
  Company Number: MY-TAKEDA-2024TUS115820

PATIENT
  Sex: Female

DRUGS (4)
  1. BRIGATINIB [Suspect]
     Active Substance: BRIGATINIB
     Indication: Non-small cell lung cancer
     Dosage: 90 MILLIGRAM, QD
  2. BRIGATINIB [Suspect]
     Active Substance: BRIGATINIB
     Dosage: 180 MILLIGRAM, QD
  3. BRIGATINIB [Suspect]
     Active Substance: BRIGATINIB
     Dosage: 90 MILLIGRAM, QD
  4. BRIGATINIB [Suspect]
     Active Substance: BRIGATINIB

REACTIONS (4)
  - Non-small cell lung cancer [Unknown]
  - Pneumonitis [Unknown]
  - Rash [Unknown]
  - Diarrhoea [Unknown]
